FAERS Safety Report 9282630 (Version 1)
Quarter: 2013Q2

REPORT INFORMATION
  Report Type: Spontaneous
  Country: US (occurrence: None)
  Receive Date: 20130509
  Receipt Date: 20130509
  Transmission Date: 20140414
  Serious: Yes (Other)
  Sender: FDA-Public Use
  Company Number: None

PATIENT
  Sex: Male

DRUGS (5)
  1. REVLIMID [Suspect]
     Indication: PLASMA CELL MYELOMA
     Dosage: 15MG, DAILY FOR 14 DAYS, PO
     Route: 048
     Dates: start: 20130322, end: 20130508
  2. VICODIN [Concomitant]
  3. FLEXERIL [Concomitant]
  4. VELCADE [Concomitant]
  5. DECADRON [Concomitant]

REACTIONS (1)
  - No adverse event [None]
